FAERS Safety Report 4555965-4 (Version None)
Quarter: 2005Q1

REPORT INFORMATION
  Report Type: 
  Country: None (occurrence: None)
  Receive Date: 20050112
  Receipt Date: 20031103
  Transmission Date: 20050727
  Serious: Yes (Other)
  Sender: FDA-Public Use
  Company Number: 200327784BWH

PATIENT
  Age: 69 Year
  Sex: Male
  Weight: 95.2554 kg

DRUGS (15)
  1. CIPRO [Suspect]
     Indication: BACTERIAL INFECTION
     Dosage: 500 MG, BID, ORAL
     Route: 048
     Dates: start: 20031001, end: 20031017
  2. DITROPAN XL [Concomitant]
  3. BISOPROLOL FUMARATE AND HYDROCHLOROTHIAZIDE [Concomitant]
  4. SPIRONOLACTONE [Concomitant]
  5. LIPITOR [Concomitant]
  6. SINGULAIR [Concomitant]
  7. PREDNISONE [Concomitant]
  8. NYSTATIN [Concomitant]
  9. CASODEX [Concomitant]
  10. NIZATIDINE [Concomitant]
  11. ROBITUSSIN EXPECTORANT [Concomitant]
  12. MOTRIN [Concomitant]
  13. ADVAIR DISKUS 100/50 [Concomitant]
  14. COMBIVENT [Concomitant]
  15. ALBUTEROL SULFATE [Concomitant]

REACTIONS (2)
  - DIFFICULTY IN WALKING [None]
  - TENDON DISORDER [None]
